FAERS Safety Report 12183503 (Version 1)
Quarter: 2016Q1

REPORT INFORMATION
  Report Type: Spontaneous
  Country: US (occurrence: US)
  Receive Date: 20160316
  Receipt Date: 20160316
  Transmission Date: 20160526
  Serious: No
  Sender: FDA-Public Use
  Company Number: US-WARNER CHILCOTT, LLC-1049147

PATIENT
  Sex: Female

DRUGS (2)
  1. ESTRING [Suspect]
     Active Substance: ESTRADIOL
     Route: 065
     Dates: start: 20141001, end: 201501
  2. ESTRACE [Suspect]
     Active Substance: ESTRADIOL
     Indication: POSTMENOPAUSE
     Route: 067
     Dates: end: 201405

REACTIONS (19)
  - Vulvovaginal pain [Recovered/Resolved]
  - Drug ineffective [Unknown]
  - Headache [Recovered/Resolved]
  - Vaginal discharge [Recovered/Resolved]
  - Discomfort [Recovered/Resolved]
  - Dysarthria [Recovered/Resolved]
  - Confusional state [Recovered/Resolved]
  - Muscle twitching [Recovered/Resolved]
  - Amnesia [Recovering/Resolving]
  - Abdominal pain [Recovered/Resolved]
  - Tremor [Recovered/Resolved]
  - Vaginal odour [Recovered/Resolved]
  - Vulvovaginal discomfort [Recovered/Resolved]
  - Visual impairment [Recovering/Resolving]
  - Cognitive disorder [Recovered/Resolved]
  - Vaginal haemorrhage [Recovered/Resolved]
  - Weight increased [Recovered/Resolved]
  - Speech disorder [Recovered/Resolved]
  - Vision blurred [Recovering/Resolving]
